FAERS Safety Report 20374870 (Version 2)
Quarter: 2024Q4

REPORT INFORMATION
  Report Type: Spontaneous
  Country: US (occurrence: US)
  Receive Date: 20220125
  Receipt Date: 20241018
  Transmission Date: 20250114
  Serious: No
  Sender: SANOFI AVENTIS
  Company Number: US-SA-SAC20220118000579

PATIENT
  Age: 52 Year
  Sex: Female

DRUGS (29)
  1. DUPIXENT [Suspect]
     Active Substance: DUPILUMAB
     Indication: Asthma
     Dosage: 200 MG, QOW
     Route: 058
     Dates: start: 20201030
  2. ADDERALL [Concomitant]
     Active Substance: AMPHETAMINE ASPARTATE\AMPHETAMINE SULFATE\DEXTROAMPHETAMINE SACCHARATE\DEXTROAMPHETAMINE SULFATE
     Dosage: 25 MG
     Route: 048
  3. ALPRAZOLAM [Concomitant]
     Active Substance: ALPRAZOLAM
  4. DEXILANT [Concomitant]
     Active Substance: DEXLANSOPRAZOLE
  5. DULOXETINE [Concomitant]
     Active Substance: DULOXETINE
     Dosage: UNK
  6. ERYTHROMYCIN [Concomitant]
     Active Substance: ERYTHROMYCIN
  7. IRBESARTAN [Concomitant]
     Active Substance: IRBESARTAN
     Dosage: UNK
  8. IRBESARTAN [Concomitant]
     Active Substance: IRBESARTAN
  9. MONTELUKAST SODIUM [Concomitant]
     Active Substance: MONTELUKAST SODIUM
  10. MYDAYIS [Concomitant]
     Active Substance: AMPHETAMINE ASPARTATE\AMPHETAMINE SULFATE\DEXTROAMPHETAMINE SACCHARATE\DEXTROAMPHETAMINE SULFATE
     Dosage: UNK
  11. PILOCARPINE [Interacting]
     Active Substance: PILOCARPINE
     Dosage: UNK
  12. RESTASIS [Concomitant]
     Active Substance: CYCLOSPORINE
     Dosage: UNK
  13. XANAX XR [Concomitant]
     Active Substance: ALPRAZOLAM
     Dosage: UNK
  14. CYMBALTA [Concomitant]
     Active Substance: DULOXETINE HYDROCHLORIDE
     Dosage: UNK
  15. HYDROCHLOROTHIAZIDE [Concomitant]
     Active Substance: HYDROCHLOROTHIAZIDE
     Dosage: UNK
  16. PLAQUENIL [Concomitant]
     Active Substance: HYDROXYCHLOROQUINE SULFATE
     Dosage: UNK
  17. DEXTROAMPHETAMINE SACCHARATE, AMPHETAMINE ASPARTATE, DEXTROAMPHETAMINE [Concomitant]
     Active Substance: DEXTROAMPHETAMINE SACCHARATE, AMPHETAMINE ASPARTATE, DEXTROAMPHETAMINE SULFATE AND AMPHETAMINE SULFA
  18. PANTOPRAZOLE [Concomitant]
     Active Substance: PANTOPRAZOLE
  19. DEXTROAMPHETAMINE SACCHARATE, AMPHETAMINE ASPARTATE, DEXTROAMPHETAMINE [Concomitant]
     Active Substance: DEXTROAMPHETAMINE SACCHARATE, AMPHETAMINE ASPARTATE, DEXTROAMPHETAMINE SULFATE AND AMPHETAMINE SULFA
  20. PROMETHAZINE [Concomitant]
     Active Substance: PROMETHAZINE HYDROCHLORIDE
  21. IPRATROPIUM BROMIDE AND ALBUTEROL SULFATE [Concomitant]
     Active Substance: ALBUTEROL SULFATE\IPRATROPIUM BROMIDE
  22. IRBESARTAN [Concomitant]
     Active Substance: IRBESARTAN
  23. FLUTICASONE [Concomitant]
     Active Substance: FLUTICASONE
  24. NEXIUM [Concomitant]
     Active Substance: ESOMEPRAZOLE MAGNESIUM
  25. BENZONATATE [Concomitant]
     Active Substance: BENZONATATE
  26. ACETAMINOPHEN\CODEINE PHOSPHATE [Concomitant]
     Active Substance: ACETAMINOPHEN\CODEINE PHOSPHATE
  27. PREDNISONE [Concomitant]
     Active Substance: PREDNISONE
  28. PREDNISONE [Concomitant]
     Active Substance: PREDNISONE
  29. ESOMEPRAZOLE [Concomitant]
     Active Substance: ESOMEPRAZOLE

REACTIONS (3)
  - Impaired quality of life [Not Recovered/Not Resolved]
  - Asthma [Unknown]
  - Drug ineffective [Unknown]
